FAERS Safety Report 7194306-3 (Version None)
Quarter: 2010Q4

REPORT INFORMATION
  Report Type: 
  Country: None (occurrence: None)
  Receive Date: 20101223
  Receipt Date: 20100804
  Transmission Date: 20110411
  Serious: Yes (Other)
  Sender: FDA-Public Use
  Company Number: GE-SANOFI-AVENTIS-2010SA045995

PATIENT
  Age: 51 Year
  Sex: Female

DRUGS (6)
  1. ENALAPRIL MALEATE [Suspect]
     Indication: HYPERTENSION
     Route: 065
  2. INDAPAMIDE [Suspect]
     Indication: HYPERTENSION
     Route: 065
  3. LEFLUNOMIDE [Suspect]
     Indication: IMMUNE SYSTEM DISORDER
     Route: 065
  4. METOPROLOL TARTRATE [Suspect]
     Indication: HYPERTENSION
     Route: 065
  5. SALAZOPYRINE [Suspect]
     Route: 065
  6. INFLIXIMAB [Suspect]
     Indication: IMMUNE SYSTEM DISORDER
     Dosage: 5 MG/KG
     Route: 065

REACTIONS (1)
  - LICHEN PLANUS [None]
